FAERS Safety Report 19501257 (Version 4)
Quarter: 2021Q3

REPORT INFORMATION
  Report Type: Report from Study
  Country: CN (occurrence: CN)
  Receive Date: 20210707
  Receipt Date: 20210730
  Transmission Date: 20211014
  Serious: Yes (Hospitalization)
  Sender: FDA-Public Use
  Company Number: CN-ROCHE-2864099

PATIENT
  Age: 28 Year
  Sex: Male
  Weight: 65 kg

DRUGS (4)
  1. PRALSETINIB. [Suspect]
     Active Substance: PRALSETINIB
     Route: 048
     Dates: start: 20200212, end: 20200902
  2. PRALSETINIB. [Suspect]
     Active Substance: PRALSETINIB
     Indication: ADENOCARCINOMA
     Route: 048
     Dates: start: 20191206, end: 20200131
  3. PRALSETINIB. [Suspect]
     Active Substance: PRALSETINIB
     Route: 048
     Dates: start: 20210707
  4. PRALSETINIB. [Suspect]
     Active Substance: PRALSETINIB
     Route: 048
     Dates: start: 20200912, end: 20210630

REACTIONS (1)
  - Blood bilirubin increased [Recovered/Resolved]

NARRATIVE: CASE EVENT DATE: 20210702
